FAERS Safety Report 9934643 (Version 1)
Quarter: 2014Q1

REPORT INFORMATION
  Report Type: Spontaneous
  Country: US (occurrence: US)
  Receive Date: 20140228
  Receipt Date: 20140228
  Transmission Date: 20141002
  Serious: No
  Sender: FDA-Public Use
  Company Number: US-ASTRAZENECA-2013SE90833

PATIENT
  Age: 88 Year
  Sex: Female
  Weight: 49.4 kg

DRUGS (5)
  1. METOPROLOL SUCCINATE [Suspect]
     Indication: ATRIAL FIBRILLATION
     Route: 048
     Dates: start: 2013
  2. METOPROLOL SUCCINATE [Suspect]
     Indication: HEART RATE ABNORMAL
     Route: 048
     Dates: start: 2013
  3. METOPROLOL SUCCINATE [Suspect]
     Indication: HYPERTENSION
     Route: 048
     Dates: start: 2013
  4. LEVOTHYROXINE [Concomitant]
     Indication: THYROID DISORDER
     Dosage: 75 MCG DAILY
  5. ZETIA [Concomitant]
     Indication: BLOOD CHOLESTEROL INCREASED
     Dates: start: 2008

REACTIONS (3)
  - Pruritus [Unknown]
  - Burning sensation [Unknown]
  - Off label use [Unknown]
